FAERS Safety Report 20591141 (Version 1)
Quarter: 2022Q1

REPORT INFORMATION
  Report Type: Spontaneous
  Country: CN (occurrence: CN)
  Receive Date: 20220314
  Receipt Date: 20220314
  Transmission Date: 20220423
  Serious: Yes (Other)
  Sender: FDA-Public Use
  Company Number: CN-009507513-2203CHN003632

PATIENT
  Age: 58 Year
  Sex: Male
  Weight: 40 kg

DRUGS (1)
  1. CILASTATIN SODIUM\IMIPENEM [Suspect]
     Active Substance: CILASTATIN SODIUM\IMIPENEM
     Indication: Pneumonia
     Dosage: 2 G 3 TIMES A DAY
     Route: 041
     Dates: start: 20220121, end: 20220125

REACTIONS (5)
  - Unresponsive to stimuli [Recovering/Resolving]
  - Loss of consciousness [Recovering/Resolving]
  - Muscle twitching [Recovering/Resolving]
  - Trismus [Recovering/Resolving]
  - Incorrect dose administered [Unknown]

NARRATIVE: CASE EVENT DATE: 20220121
